FAERS Safety Report 10709491 (Version 1)
Quarter: 2015Q1

REPORT INFORMATION
  Report Type: Spontaneous
  Country: US (occurrence: None)
  Receive Date: 20150113
  Receipt Date: 20150113
  Transmission Date: 20150721
  Serious: Yes (Disabling, Other)
  Sender: FDA-Public Use
  Company Number: None

PATIENT
  Age: 66 Year
  Sex: Female
  Weight: 54.43 kg

DRUGS (1)
  1. PROLIA [Suspect]
     Active Substance: DENOSUMAB
     Indication: OSTEOPOROSIS
     Dosage: INJECTION DR. ONLY ALLOWED 1 DR. BILLY SAYS ^IN MUSCLE OR UDNER SKIN_
     Dates: start: 20140304

REACTIONS (8)
  - Blood urine present [None]
  - Muscle spasms [None]
  - Myalgia [None]
  - Cellulitis [None]
  - Arthralgia [None]
  - Bone pain [None]
  - Pain [None]
  - Pruritus [None]

NARRATIVE: CASE EVENT DATE: 20140304
